FAERS Safety Report 21471407 (Version 1)
Quarter: 2022Q4

REPORT INFORMATION
  Report Type: Spontaneous
  Country: IN (occurrence: IN)
  Receive Date: 20221018
  Receipt Date: 20221018
  Transmission Date: 20230113
  Serious: Yes (Life-Threatening, Hospitalization)
  Sender: FDA-Public Use
  Company Number: IN-MYLANLABS-2022M1115115

PATIENT
  Age: 32 Year
  Sex: Female

DRUGS (6)
  1. METHOTREXATE [Suspect]
     Active Substance: METHOTREXATE
     Indication: Scar
     Dosage: 50 MILLIGRAM/KILOGRAM
     Route: 026
  2. METHOTREXATE [Suspect]
     Active Substance: METHOTREXATE
     Indication: Caesarean section
  3. METHOTREXATE [Suspect]
     Active Substance: METHOTREXATE
     Indication: Pregnancy
  4. METHOTREXATE [Suspect]
     Active Substance: METHOTREXATE
     Indication: Scar
     Dosage: 50 MILLIGRAM/KILOGRAM; INTRAVENOUS (NOT SPECIFIED)
     Route: 042
  5. METHOTREXATE [Suspect]
     Active Substance: METHOTREXATE
     Indication: Caesarean section
  6. METHOTREXATE [Suspect]
     Active Substance: METHOTREXATE
     Indication: Pregnancy

REACTIONS (1)
  - Shock haemorrhagic [Recovered/Resolved]
